FAERS Safety Report 8768685 (Version 1)
Quarter: 2012Q4

REPORT INFORMATION
  Report Type: 
  Country: US (occurrence: US)
  Receive Date: 20120904
  Receipt Date: 20120904
  Transmission Date: 20130627
  Serious: No
  Sender: FDA-Public Use
  Company Number: US-AMGEN-USASP2012052273

PATIENT
  Age: 11 Year
  Sex: Male

DRUGS (1)
  1. ENBREL [Suspect]
     Indication: JUVENILE ARTHRITIS
     Dosage: 20 mg, 2 times/wk
     Dates: start: 20120221

REACTIONS (2)
  - Injection site reaction [Not Recovered/Not Resolved]
  - Injection site vesicles [Not Recovered/Not Resolved]
